FAERS Safety Report 5678343-3 (Version None)
Quarter: 2008Q1

REPORT INFORMATION
  Report Type: 
  Country: None (occurrence: None)
  Receive Date: 20080320
  Receipt Date: 20080307
  Transmission Date: 20080703
  Serious: Yes (Hospitalization)
  Sender: FDA-Public Use
  Company Number: VNL_00992_2008

PATIENT
  Sex: Male

DRUGS (1)
  1. APOKYN [Suspect]
     Indication: DRUG USE FOR UNKNOWN INDICATION
     Dosage: (0.3 ML FREQUENCY UNKNOWN SUBCUTANEOUS)
     Route: 058

REACTIONS (2)
  - CONVULSION [None]
  - PNEUMONIA [None]
